FAERS Safety Report 4919460-2 (Version None)
Quarter: 2006Q1

REPORT INFORMATION
  Report Type: 
  Country: None (occurrence: None)
  Receive Date: 20060113
  Receipt Date: 20051103
  Transmission Date: 20060701
  Serious: No
  Sender: FDA-Public Use
  Company Number: 2005SP003825

PATIENT
  Age: 34 Year
  Sex: Female
  Weight: 58.9676 kg

DRUGS (5)
  1. LUNESTA [Suspect]
     Indication: INSOMNIA
     Dosage: 3MG;HS;ORAL, 4.5MG;HS;ORAL, 6MG;HS;ORAL
     Route: 048
     Dates: start: 20050101, end: 20050101
  2. LUNESTA [Suspect]
     Indication: INSOMNIA
     Dosage: 3MG;HS;ORAL, 4.5MG;HS;ORAL, 6MG;HS;ORAL
     Route: 048
     Dates: start: 20051031, end: 20050101
  3. LUNESTA [Suspect]
     Indication: INSOMNIA
     Dosage: 3MG;HS;ORAL, 4.5MG;HS;ORAL, 6MG;HS;ORAL
     Route: 048
     Dates: start: 20050101
  4. BUSPAR [Concomitant]
  5. AMBIEN [Concomitant]

REACTIONS (2)
  - DRUG INEFFECTIVE [None]
  - INITIAL INSOMNIA [None]
